FAERS Safety Report 11495164 (Version 1)
Quarter: 2015Q3

REPORT INFORMATION
  Report Type: Spontaneous
  Country: US (occurrence: US)
  Receive Date: 20150911
  Receipt Date: 20150911
  Transmission Date: 20151125
  Serious: No
  Sender: FDA-Public Use
  Company Number: US-CELGENEUS-USA-2015075276

PATIENT
  Sex: Male
  Weight: 83.99 kg

DRUGS (5)
  1. OTEZLA [Suspect]
     Active Substance: APREMILAST
     Indication: ANKYLOSING SPONDYLITIS
  2. METOPROLOL/HCTZ [Concomitant]
     Active Substance: HYDROCHLOROTHIAZIDE\METOPROLOL
     Indication: HYPERTENSION
     Dosage: 5/25MG
     Route: 048
  3. PROBIOTICS [Concomitant]
     Active Substance: PROBIOTICS NOS
     Indication: DIVERTICULITIS
     Route: 065
  4. OCXYCODONE/APAP [Concomitant]
     Indication: DIVERTICULITIS
     Dosage: 5-325MG
     Route: 048
  5. OTEZLA [Suspect]
     Active Substance: APREMILAST
     Indication: PSORIATIC ARTHROPATHY
     Dosage: 60 MILLIGRAM
     Route: 048
     Dates: start: 2015

REACTIONS (3)
  - Cyst [Not Recovered/Not Resolved]
  - Diarrhoea [Not Recovered/Not Resolved]
  - Vomiting [Not Recovered/Not Resolved]

NARRATIVE: CASE EVENT DATE: 2015
